FAERS Safety Report 9891380 (Version 2)
Quarter: 2014Q1

REPORT INFORMATION
  Report Type: Spontaneous
  Country: DE (occurrence: None)
  Receive Date: 20140207
  Receipt Date: 20140218
  Transmission Date: 20141002
  Serious: Yes (Disabling, Other)
  Sender: FDA-Public Use
  Company Number: 1401-0215

PATIENT
  Age: 85 Year
  Sex: Female

DRUGS (8)
  1. EYLEA (AFLIBERCEPT) (SOLUTION FOR INJECTION) (AFLIBERCEPT) [Suspect]
     Indication: CHOROIDAL NEOVASCULARISATION
     Route: 031
     Dates: start: 20130603, end: 20130603
  2. PLAVIX (CLOPIDOGREL BISULFATE) [Concomitant]
  3. INSULIN (INSULIN) [Concomitant]
  4. NORVASC (AMLODIPINE BESILATE) [Concomitant]
  5. TOREM (TORASEMIDE) [Concomitant]
  6. ASPRIIN (ACETYLSALICYLIC ACID) [Concomitant]
  7. SIMCORA (SIMVASTATIN) [Concomitant]
  8. LEXOTANIL (BROMAZEPAM) [Concomitant]

REACTIONS (2)
  - Retinal haemorrhage [None]
  - Blindness [None]
